FAERS Safety Report 8625442-X (Version None)
Quarter: 2012Q3

REPORT INFORMATION
  Report Type: 
  Country: None (occurrence: None)
  Receive Date: 20120827
  Receipt Date: 20120821
  Transmission Date: 20120928
  Serious: Yes (Other)
  Sender: FDA-Public Use
  Company Number: CHPA2012US018655

PATIENT
  Age: 42 Year
  Sex: Female

DRUGS (2)
  1. BENEFIBER CHEWABLE TABLET [Suspect]
     Indication: CONSTIPATION
     Dosage: 2 DF, TID
     Route: 048
     Dates: start: 20111001
  2. BENEFIBER W/ WHEAT DEXTRIN [Suspect]
     Indication: CONSTIPATION
     Dosage: 2 TSP, TID
     Route: 048
     Dates: start: 20111001

REACTIONS (4)
  - GASTRIC ULCER [None]
  - THERAPEUTIC RESPONSE UNEXPECTED [None]
  - OFF LABEL USE [None]
  - BARRETT'S OESOPHAGUS [None]
